FAERS Safety Report 5603194-5 (Version None)
Quarter: 2008Q1

REPORT INFORMATION
  Report Type: 
  Country: None (occurrence: None)
  Receive Date: 20080125
  Receipt Date: 20080117
  Transmission Date: 20080703
  Serious: Yes (Hospitalization, Other)
  Sender: FDA-Public Use
  Company Number: AU-PFIZER INC-2007103105

PATIENT
  Sex: Male

DRUGS (3)
  1. SUTENT [Suspect]
     Indication: RENAL CELL CARCINOMA
     Route: 048
     Dates: start: 20070510, end: 20071129
  2. EPILIM [Concomitant]
     Route: 048
  3. DEXAMETHASONE TAB [Concomitant]
     Route: 048

REACTIONS (6)
  - ARTERIAL THROMBOSIS [None]
  - CEREBROVASCULAR ACCIDENT [None]
  - DYSPHASIA [None]
  - HEMIPARESIS [None]
  - HYPOAESTHESIA [None]
  - PAIN IN EXTREMITY [None]
